FAERS Safety Report 8072846-2 (Version None)
Quarter: 2012Q1

REPORT INFORMATION
  Report Type: 
  Country: None (occurrence: None)
  Receive Date: 20120123
  Receipt Date: 20120109
  Transmission Date: 20120608
  Serious: Yes (Death)
  Sender: FDA-Public Use
  Company Number: 2012MA000710

PATIENT
  Age: 51 Year
  Sex: Female

DRUGS (6)
  1. PAREGORIC LIQUID USP (ALPHARMA) [Suspect]
  2. CLONAZEPAM [Concomitant]
  3. TOPIRAMATE [Concomitant]
  4. VENLAFAXINE [Concomitant]
  5. PROMETHAZINE [Concomitant]
  6. LAMOTRIGINE [Concomitant]

REACTIONS (2)
  - MYOCARDITIS [None]
  - DRUG SCREEN POSITIVE [None]
